FAERS Safety Report 18751943 (Version 1)
Quarter: 2021Q1

REPORT INFORMATION
  Report Type: Report from Study
  Country: AU (occurrence: AU)
  Receive Date: 20210118
  Receipt Date: 20210118
  Transmission Date: 20210419
  Serious: Yes (Hospitalization)
  Sender: FDA-Public Use
  Company Number: AU-CLOVIS ONCOLOGY-CLO-2020-000945

PATIENT

DRUGS (9)
  1. DENOSUMAB [Concomitant]
     Active Substance: DENOSUMAB
     Indication: OSTEOPOROSIS
     Dosage: UNK
     Dates: start: 201810
  2. VITAMIN B12 [Concomitant]
     Active Substance: CYANOCOBALAMIN
     Indication: VITAMIN B12 DEFICIENCY
     Dosage: UNK
     Dates: start: 2004
  3. RUCAPARIB [Suspect]
     Active Substance: RUCAPARIB
     Dosage: 500 MILLIGRAM, BD
     Route: 048
     Dates: start: 20200529
  4. NIVOLUMAB [Suspect]
     Active Substance: NIVOLUMAB
     Indication: OVARIAN CANCER
     Dosage: 480 MG, QMO
     Route: 042
     Dates: start: 20200424, end: 20200424
  5. OSTEVIT D [Concomitant]
     Indication: OSTEOPOROSIS
     Dosage: UNK
     Dates: start: 201810
  6. RUCAPARIB [Suspect]
     Active Substance: RUCAPARIB
     Indication: OVARIAN CANCER
     Dosage: 600 MG, BID
     Route: 048
     Dates: start: 20200228
  7. RUCAPARIB [Suspect]
     Active Substance: RUCAPARIB
     Dosage: 600 MG, QD
     Route: 048
     Dates: end: 20200519
  8. NIVOLUMAB [Suspect]
     Active Substance: NIVOLUMAB
     Dosage: UNK
     Route: 042
     Dates: start: 20200619
  9. SWISSE CALCIUM + VITAMIN D [Concomitant]
     Indication: OSTEOPOROSIS
     Dosage: UNK
     Dates: start: 201810

REACTIONS (1)
  - Pancytopenia [Recovered/Resolved]

NARRATIVE: CASE EVENT DATE: 20200519
